APPROVED DRUG PRODUCT: CLOPIDOGREL BISULFATE
Active Ingredient: CLOPIDOGREL BISULFATE
Strength: EQ 75MG BASE
Dosage Form/Route: TABLET;ORAL
Application: A204359 | Product #001 | TE Code: AB
Applicant: RISING PHARMA HOLDINGS INC
Approved: Feb 2, 2017 | RLD: No | RS: No | Type: RX